FAERS Safety Report 25241950 (Version 1)
Quarter: 2025Q2

REPORT INFORMATION
  Report Type: Spontaneous
  Country: IE (occurrence: IE)
  Receive Date: 20250426
  Receipt Date: 20250426
  Transmission Date: 20250716
  Serious: Yes (Other)
  Sender: AUROBINDO
  Company Number: IE-HPRA-2025-119740

PATIENT
  Age: 33 Year
  Sex: Female
  Weight: 78.7 kg

DRUGS (8)
  1. MONTELUKAST [Suspect]
     Active Substance: MONTELUKAST
     Indication: Asthma
     Route: 048
     Dates: start: 20130130, end: 20240910
  2. DELTACORTRIL [Concomitant]
     Active Substance: PREDNISOLONE
     Indication: Vasculitis
     Route: 048
     Dates: start: 20160901
  3. SYMBICORT [Concomitant]
     Active Substance: BUDESONIDE\FORMOTEROL FUMARATE DIHYDRATE
     Indication: Asthma
     Dosage: 2.5 MICROGRAM, ONCE A DAY
     Dates: start: 20130901
  4. SPIRIVA RESPIMAT [Concomitant]
     Active Substance: TIOTROPIUM BROMIDE
     Indication: Asthma
     Dosage: 2.5 MICROGRAM, ONCE A DAY
     Dates: start: 20130901
  5. Nexazole [Concomitant]
     Indication: Gastrooesophageal reflux disease
     Route: 048
     Dates: start: 20120110
  6. BISOPROLOL [Concomitant]
     Active Substance: BISOPROLOL
     Indication: Tachycardia
     Route: 065
     Dates: start: 20190612
  7. PROCHLORPERAZINE [Concomitant]
     Active Substance: PROCHLORPERAZINE
     Indication: Vertigo
     Dosage: 25 MILLIGRAM, ONCE A DAY
     Route: 065
     Dates: start: 20220901
  8. IRON [Concomitant]
     Active Substance: IRON
     Indication: Prophylaxis
     Route: 065
     Dates: start: 19970201

REACTIONS (2)
  - Sleep disorder [Recovering/Resolving]
  - Hypnopompic hallucination [Recovered/Resolved]

NARRATIVE: CASE EVENT DATE: 20170831
